FAERS Safety Report 23794563 (Version 1)
Quarter: 2024Q2

REPORT INFORMATION
  Report Type: Spontaneous
  Country: CN (occurrence: CN)
  Receive Date: 20240429
  Receipt Date: 20240429
  Transmission Date: 20240716
  Serious: Yes (Life-Threatening, Hospitalization, Other)
  Sender: FDA-Public Use
  Company Number: CN-PFIZER INC-PV202400054664

PATIENT
  Age: 71 Year
  Sex: Male

DRUGS (4)
  1. VORICONAZOLE [Suspect]
     Active Substance: VORICONAZOLE
     Indication: Pneumonia
     Dosage: 360.000 MG, 2X/DAY
     Route: 041
     Dates: start: 20231023, end: 20231024
  2. VORICONAZOLE [Suspect]
     Active Substance: VORICONAZOLE
     Indication: Candida infection
     Dosage: 200.000 MG, 2X/DAY
     Route: 041
     Dates: start: 20231024, end: 20231030
  3. MEROPENEM [Concomitant]
     Active Substance: MEROPENEM
     Indication: Pneumonia
     Dosage: UNK
     Dates: start: 20231023
  4. MEROPENEM [Concomitant]
     Active Substance: MEROPENEM
     Indication: Candida infection

REACTIONS (5)
  - Cardiac failure [Unknown]
  - Hepatic function abnormal [Recovering/Resolving]
  - Hepatic enzyme increased [Recovered/Resolved]
  - Blood bilirubin increased [Recovered/Resolved]
  - Off label use [Unknown]

NARRATIVE: CASE EVENT DATE: 20231023
